FAERS Safety Report 15764925 (Version 1)
Quarter: 2018Q4

REPORT INFORMATION
  Report Type: Spontaneous
  Country: RU (occurrence: RU)
  Receive Date: 20181227
  Receipt Date: 20181227
  Transmission Date: 20190205
  Serious: Yes (Congenital Anomaly)
  Sender: FDA-Public Use
  Company Number: RU-SAKK-2018SA392109AA

PATIENT
  Sex: Female
  Weight: 4.2 kg

DRUGS (1)
  1. CLEXANE [Suspect]
     Active Substance: ENOXAPARIN SODIUM
     Dosage: STARTS AT 26 WEEK OF MOTHER^S PREGNANCY AND STOPS AT 30 WEEK OF MOTHER^S PREGNANCY
     Route: 064

REACTIONS (2)
  - Congenital hydrocephalus [Unknown]
  - Foetal exposure during pregnancy [Unknown]
